FAERS Safety Report 22219164 (Version 3)
Quarter: 2023Q2

REPORT INFORMATION
  Report Type: Spontaneous
  Country: BG (occurrence: BG)
  Receive Date: 20230417
  Receipt Date: 20230626
  Transmission Date: 20230722
  Serious: Yes (Death, Life-Threatening, Hospitalization, Other)
  Sender: FDA-Public Use
  Company Number: None

PATIENT
  Age: 70 Year
  Sex: Female

DRUGS (1)
  1. METFORMIN [Suspect]
     Active Substance: METFORMIN HYDROCHLORIDE
     Indication: Type 2 diabetes mellitus
     Dosage: UNK
     Route: 065

REACTIONS (10)
  - Toxicity to various agents [Fatal]
  - Multiple organ dysfunction syndrome [Fatal]
  - Lactic acidosis [Fatal]
  - Acute kidney injury [Fatal]
  - Normochromic anaemia [Unknown]
  - Anuria [Unknown]
  - Hyperkalaemia [Unknown]
  - Anaemia macrocytic [Unknown]
  - Hyponatraemia [Unknown]
  - Hypotension [Unknown]
